FAERS Safety Report 5656911-2 (Version None)
Quarter: 2008Q1

REPORT INFORMATION
  Report Type: 
  Country: None (occurrence: None)
  Receive Date: 20080219
  Receipt Date: 20071025
  Transmission Date: 20080703
  Serious: No
  Sender: FDA-Public Use
  Company Number: WAES 0710USA05669

PATIENT
  Age: 59 Year
  Sex: Male
  Weight: 112.0385 kg

DRUGS (9)
  1. JANUVIA [Suspect]
     Indication: DIABETES MELLITUS
     Dosage: 100 MG/DAILY/PO
     Route: 048
     Dates: start: 20070611, end: 20071020
  2. ACTOS [Concomitant]
  3. ALTACE [Concomitant]
  4. CELEBREX [Concomitant]
  5. COREG [Concomitant]
  6. LEVITRA [Concomitant]
  7. TESTIM [Concomitant]
  8. VYTORIN [Concomitant]
  9. ASPIRIN [Concomitant]

REACTIONS (1)
  - ECZEMA [None]
